FAERS Safety Report 5934383-8 (Version None)
Quarter: 2008Q4

REPORT INFORMATION
  Report Type: 
  Country: None (occurrence: None)
  Receive Date: 20081029
  Receipt Date: 20081022
  Transmission Date: 20090506
  Serious: Yes (Hospitalization)
  Sender: FDA-Public Use
  Company Number: PHHY2008AT25637

PATIENT
  Age: 48 Year
  Sex: Female

DRUGS (6)
  1. TRILEPTAL [Suspect]
     Indication: BIPOLAR DISORDER
     Dosage: 600 MG, QD
     Route: 048
     Dates: start: 20070927, end: 20080122
  2. TRILEPTAL [Suspect]
     Dosage: 1200 MG, QD
     Route: 048
     Dates: start: 20080123
  3. TRILEPTAL [Suspect]
     Dosage: 600 MG, QD
     Route: 048
     Dates: start: 20080209
  4. LAMICTAL ^BURROUGHS WELLCOME^ [Concomitant]
     Dosage: UNK
  5. WELLBUTRIN [Concomitant]
     Dosage: UNK
     Dates: start: 20080122, end: 20080301
  6. ZELDOX                                  /GFR/ [Concomitant]
     Dosage: UNK

REACTIONS (3)
  - BLOOD SODIUM DECREASED [None]
  - DEPRESSION [None]
  - HYPONATRAEMIA [None]
